FAERS Safety Report 14795029 (Version 1)
Quarter: 2018Q2

REPORT INFORMATION
  Report Type: Spontaneous
  Country: None (occurrence: JP)
  Receive Date: 20180423
  Receipt Date: 20180423
  Transmission Date: 20180711
  Serious: Yes (Other)
  Sender: FDA-Public Use
  Company Number: JP-ALLERGAN-1822541US

PATIENT
  Age: 60 Year
  Sex: Female

DRUGS (1)
  1. ASENAPINE MALEATE - BP [Suspect]
     Active Substance: ASENAPINE MALEATE
     Indication: PARANOIA
     Dosage: 5 MG, BID
     Route: 060

REACTIONS (2)
  - Sedation complication [Recovered/Resolved]
  - Hypoaesthesia oral [Recovered/Resolved]
